FAERS Safety Report 4427419-7 (Version None)
Quarter: 2004Q3

REPORT INFORMATION
  Report Type: 
  Country: None (occurrence: None)
  Receive Date: 20040813
  Receipt Date: 20040802
  Transmission Date: 20050211
  Serious: Yes (Hospitalization, Other)
  Sender: FDA-Public Use
  Company Number: 04-00419

PATIENT
  Age: 43 Year
  Sex: Female

DRUGS (12)
  1. PHENOBARBITAL ELIXIR USP (ALPHARMA) [Suspect]
     Dosage: 60MG, DAILY
  2. PHENOBARBITAL TAB [Suspect]
     Dosage: 60MG, DAILY
  3. PHENYTOIN [Suspect]
     Indication: CONVULSION
     Dosage: 300 MG DAILY
  4. ACETAMINOPHEN [Suspect]
     Indication: PYREXIA
     Dosage: 650MG, EVERY FOUR HOURS
  5. ACETAMINOPHEN INFANT DROPS (ALPHARMA) [Concomitant]
     Indication: PYREXIA
     Dosage: 650MG, EVERY FOUR HOURS
  6. ACETAMINOPHEN [Suspect]
     Indication: PYREXIA
     Dosage: 650MG, EVERY FOUR HOURS
  7. CEFTRIAXONE [Concomitant]
  8. DIPHENHYDRAMINE HCL [Concomitant]
  9. AMOXICILLIN [Concomitant]
  10. FAMOTIDINE [Concomitant]
  11. DIPHENHYDRAMINE HCL [Concomitant]
  12. METHYLPREDNISOLONE [Concomitant]

REACTIONS (32)
  - ALANINE AMINOTRANSFERASE INCREASED [None]
  - AMMONIA INCREASED [None]
  - ASPARTATE AMINOTRANSFERASE INCREASED [None]
  - ATELECTASIS [None]
  - BLOOD ALBUMIN DECREASED [None]
  - BLOOD ALKALINE PHOSPHATASE INCREASED [None]
  - BLOOD BILIRUBIN INCREASED [None]
  - BLOOD CREATININE INCREASED [None]
  - BLOOD GLUCOSE INCREASED [None]
  - BLOOD PRESSURE DIASTOLIC DECREASED [None]
  - COUGH [None]
  - DERMATITIS EXFOLIATIVE [None]
  - HAEMATOCRIT DECREASED [None]
  - HAEMOGLOBIN DECREASED [None]
  - HEART RATE INCREASED [None]
  - HYPERKALAEMIA [None]
  - LYMPHADENOPATHY [None]
  - LYMPHOCYTE PERCENTAGE DECREASED [None]
  - MUCOUS MEMBRANE DISORDER [None]
  - NEUTROPHIL PERCENTAGE INCREASED [None]
  - OEDEMA PERIPHERAL [None]
  - PERIORBITAL OEDEMA [None]
  - PHARYNGITIS [None]
  - PNEUMONIA [None]
  - PYURIA [None]
  - RASH GENERALISED [None]
  - RASH MACULO-PAPULAR [None]
  - RASH MORBILLIFORM [None]
  - RESPIRATORY RATE INCREASED [None]
  - SWELLING FACE [None]
  - TRICHOMONIASIS [None]
  - URINARY TRACT INFECTION [None]
